FAERS Safety Report 17576394 (Version 1)
Quarter: 2020Q1

REPORT INFORMATION
  Report Type: Spontaneous
  Country: US (occurrence: US)
  Receive Date: 20200324
  Receipt Date: 20200324
  Transmission Date: 20200409
  Serious: No
  Sender: FDA-Public Use
  Company Number: None

PATIENT
  Age: 31 Year
  Sex: Female
  Weight: 66.15 kg

DRUGS (1)
  1. CLOBETASOL PROPIONATE TOPICAL SOLUTION USP 0.05% [Suspect]
     Active Substance: CLOBETASOL PROPIONATE
     Indication: PRURITUS
     Dosage: ?          QUANTITY:1 DROP ON EACH AREA;?
     Route: 061
     Dates: start: 20190101, end: 20200324

REACTIONS (3)
  - Cyst [None]
  - Pain of skin [None]
  - Rash pustular [None]

NARRATIVE: CASE EVENT DATE: 20200201
